FAERS Safety Report 5327065-7 (Version None)
Quarter: 2007Q2

REPORT INFORMATION
  Report Type: 
  Country: None (occurrence: None)
  Receive Date: 20070517
  Receipt Date: 20070511
  Transmission Date: 20071010
  Serious: Yes (Hospitalization, Other)
  Sender: FDA-Public Use
  Company Number: PHEH2007US04371

PATIENT
  Age: 27 Year
  Sex: Female
  Weight: 73.469 kg

DRUGS (2)
  1. ZELNORM [Suspect]
     Indication: IRRITABLE BOWEL SYNDROME
     Dosage: UNK, UNK
     Dates: start: 20070320, end: 20070402
  2. ORTHO TRI-CYCLEN LO [Concomitant]
     Indication: CONTRACEPTION
     Dosage: 1 TAB DAILY
     Dates: start: 20061101

REACTIONS (6)
  - ABDOMINAL DISTENSION [None]
  - ASCITES [None]
  - CONSTIPATION [None]
  - DIVERTICULUM [None]
  - LOCALISED OEDEMA [None]
  - PAIN [None]
